FAERS Safety Report 24648189 (Version 1)
Quarter: 2024Q4

REPORT INFORMATION
  Report Type: Spontaneous
  Country: US (occurrence: US)
  Receive Date: 20241121
  Receipt Date: 20241121
  Transmission Date: 20250114
  Serious: Yes (Hospitalization, Other)
  Sender: BRISTOL-MYERS SQUIBB COMPANY
  Company Number: US-BRISTOL-MYERS SQUIBB COMPANY-2024-178513

PATIENT
  Age: 68 Year
  Sex: Male
  Weight: 108.86 kg

DRUGS (1)
  1. POMALYST [Suspect]
     Active Substance: POMALIDOMIDE
     Indication: Plasma cell myeloma
     Dosage: 3WKSON,1WKOFF
     Route: 048
     Dates: start: 20230519, end: 20240927

REACTIONS (5)
  - Respiratory failure [Recovering/Resolving]
  - Chronic obstructive pulmonary disease [Unknown]
  - Hypertensive emergency [Unknown]
  - Acute kidney injury [Unknown]
  - Chronic kidney disease [Unknown]

NARRATIVE: CASE EVENT DATE: 20241103
